FAERS Safety Report 16810029 (Version 1)
Quarter: 2019Q3

REPORT INFORMATION
  Report Type: Spontaneous
  Country: US (occurrence: US)
  Receive Date: 20190725
  Receipt Date: 20190725
  Transmission Date: 20191005
  Serious: Yes (Hospitalization)
  Sender: FDA-Public Use
  Company Number: None

PATIENT
  Age: 56 Year
  Sex: Male

DRUGS (1)
  1. TOBRAMYCIN NEB 300MG/5ML [Suspect]
     Active Substance: TOBRAMYCIN
     Dates: start: 2018

REACTIONS (4)
  - Condition aggravated [None]
  - Feeling abnormal [None]
  - Depression [None]
  - Lung disorder [None]

NARRATIVE: CASE EVENT DATE: 20190530
